FAERS Safety Report 7508386-6 (Version None)
Quarter: 2011Q2

REPORT INFORMATION
  Report Type: 
  Country: None (occurrence: None)
  Receive Date: 20110527
  Receipt Date: 20110523
  Transmission Date: 20111010
  Serious: No
  Sender: FDA-Public Use
  Company Number: US-PFIZER INC-2011110928

PATIENT
  Sex: Male
  Weight: 113.38 kg

DRUGS (1)
  1. NICOTROL [Suspect]
     Indication: SMOKING CESSATION THERAPY
     Dosage: UNK, 6X/DAY
     Route: 055
     Dates: start: 20110519, end: 20110520

REACTIONS (1)
  - DRUG INEFFECTIVE [None]
